FAERS Safety Report 6426135-X (Version None)
Quarter: 2009Q4

REPORT INFORMATION
  Report Type: 
  Country: None (occurrence: None)
  Receive Date: 20091028
  Receipt Date: 20091009
  Transmission Date: 20100525
  Serious: Yes (Other)
  Sender: FDA-Public Use
  Company Number: 2009209276

PATIENT
  Age: 38 Year
  Sex: Female
  Weight: 60 kg

DRUGS (1)
  1. FRAGMIN [Suspect]
     Dosage: 0.6 ML, 1X/DAY, SUBCUNTANEOUS
     Route: 058
     Dates: start: 20090420, end: 20090429

REACTIONS (1)
  - MUSCLE SPASMS [None]
